FAERS Safety Report 7326423-9 (Version None)
Quarter: 2011Q1

REPORT INFORMATION
  Report Type: 
  Country: None (occurrence: None)
  Receive Date: 20110302
  Receipt Date: 20101213
  Transmission Date: 20110831
  Serious: Yes (Death)
  Sender: FDA-Public Use
  Company Number: JP-BAYER-201015023BYL

PATIENT
  Sex: Male
  Weight: 67 kg

DRUGS (7)
  1. GASTER D [Concomitant]
     Indication: GASTRITIS
     Dosage: DAILY DOSE 40 MG
     Route: 048
     Dates: start: 20050919, end: 20100929
  2. TAMSULOSIN HCL [Concomitant]
     Indication: POLLAKIURIA
     Dosage: DAILY DOSE 2 DF
     Route: 048
     Dates: start: 20050919, end: 20100929
  3. DIOVAN [Concomitant]
     Indication: HYPERTENSION
     Dosage: DAILY DOSE 80 MG
     Route: 048
     Dates: start: 19800101, end: 20100929
  4. NEXAVAR [Suspect]
     Indication: HEPATIC NEOPLASM MALIGNANT
     Dosage: 200 MG, QD
     Route: 048
     Dates: start: 20100222, end: 20100929
  5. DECADRON [Concomitant]
     Indication: PROSTATE CANCER
     Dosage: DAILY DOSE 1 MG
     Route: 048
     Dates: start: 20050919, end: 20100929
  6. VESICARE [Concomitant]
     Indication: POLLAKIURIA
     Dosage: DAILY DOSE 2 DF
     Route: 048
     Dates: start: 20050919, end: 20100929
  7. NORVASC [Concomitant]
     Indication: HYPERTENSION
     Dosage: DAILY DOSE 5 MG
     Route: 048
     Dates: start: 19800101, end: 20100929

REACTIONS (1)
  - NEUROGENIC SHOCK [None]
